FAERS Safety Report 7946604-0 (Version None)
Quarter: 2011Q4

REPORT INFORMATION
  Report Type: 
  Country: None (occurrence: None)
  Receive Date: 20111129
  Receipt Date: 20111117
  Transmission Date: 20120403
  Serious: Yes (Death, Life-Threatening, Other)
  Sender: FDA-Public Use
  Company Number: JP-GENZYME-THYM-1002912

PATIENT
  Sex: Female
  Weight: 46 kg

DRUGS (15)
  1. TACROLIMUS [Concomitant]
     Indication: PROPHYLAXIS AGAINST GRAFT VERSUS HOST DISEASE
     Dosage: UNK
     Dates: start: 20110805, end: 20111029
  2. METHYLPREDNISOLONE SODIUM SUCCINATE [Concomitant]
     Indication: PREMEDICATION
     Dosage: UNK
     Dates: start: 20110725, end: 20110726
  3. MYCOPHENOLATE MOFETIL [Concomitant]
     Indication: PROPHYLAXIS AGAINST GRAFT VERSUS HOST DISEASE
     Dosage: UNK
     Dates: start: 20110805, end: 20110909
  4. THYMOGLOBULIN [Suspect]
     Indication: BONE MARROW CONDITIONING REGIMEN
     Dosage: 91.5 MG/DAY, UNK
     Route: 042
     Dates: start: 20100607, end: 20100609
  5. THYMOGLOBULIN [Suspect]
     Dosage: 77.4 MG/DAY, UNK
     Route: 042
     Dates: start: 20110725, end: 20110726
  6. FLUDARABINE PHOSPHATE [Concomitant]
     Dosage: UNK
     Dates: start: 20110727, end: 20110730
  7. CYTARABINE [Concomitant]
     Indication: ACUTE MYELOID LEUKAEMIA
     Dosage: UNK
     Dates: start: 20110722, end: 20110723
  8. FLUDARABINE PHOSPHATE [Concomitant]
     Indication: ACUTE MYELOID LEUKAEMIA
     Dosage: UNK
     Dates: start: 20110722, end: 20110723
  9. CEFEPIME HYDROCHLORIDE [Concomitant]
     Indication: INFECTION PROPHYLAXIS
     Dosage: UNK
     Dates: start: 20110730, end: 20110803
  10. AMPHOTERICIN B [Concomitant]
     Indication: SINUSITIS ASPERGILLUS
     Dosage: UNK
     Dates: start: 20110617, end: 20110630
  11. CYCLOPHOSPHAMIDE [Concomitant]
     Indication: PROPHYLAXIS AGAINST GRAFT VERSUS HOST DISEASE
     Dosage: UNK
     Dates: start: 20110805, end: 20110805
  12. MELPHALAN HYDROCHLORIDE [Concomitant]
     Indication: ACUTE MYELOID LEUKAEMIA
     Dosage: UNK
     Dates: start: 20110731, end: 20110731
  13. MEROPENEM [Concomitant]
     Indication: INFECTION PROPHYLAXIS
     Dosage: UNK
     Dates: start: 20110803, end: 20110812
  14. VORICONAZOLE [Concomitant]
     Indication: SINUSITIS ASPERGILLUS
     Dosage: UNK
     Dates: start: 20110701, end: 20110805
  15. ACYCLOVIR [Concomitant]
     Indication: INFECTION PROPHYLAXIS
     Dosage: UNK
     Dates: start: 20110803, end: 20111028

REACTIONS (5)
  - ACUTE MYELOID LEUKAEMIA RECURRENT [None]
  - BRONCHOPULMONARY ASPERGILLOSIS [None]
  - FEBRILE NEUTROPENIA [None]
  - ACUTE GRAFT VERSUS HOST DISEASE IN SKIN [None]
  - PNEUMONIA STAPHYLOCOCCAL [None]
